FAERS Safety Report 9743245 (Version 1)
Quarter: 2013Q4

REPORT INFORMATION
  Report Type: Spontaneous
  Country: US (occurrence: US)
  Receive Date: 20131210
  Receipt Date: 20131210
  Transmission Date: 20140711
  Serious: No
  Sender: FDA-Public Use
  Company Number: US-GILEAD-2009-0025120

PATIENT
  Sex: Male
  Weight: 72.57 kg

DRUGS (13)
  1. LETAIRIS [Suspect]
     Indication: PULMONARY ARTERIAL HYPERTENSION
     Route: 048
     Dates: start: 20090630
  2. HUMULIN L [Concomitant]
  3. LASIX [Concomitant]
  4. NOVOLIN L [Concomitant]
  5. ALBUTEROL [Concomitant]
  6. COUMADIN [Concomitant]
  7. COREG [Concomitant]
  8. SINEMET [Concomitant]
  9. TIMOLOL [Concomitant]
  10. AVODART [Concomitant]
  11. GALANTAMINE [Concomitant]
  12. COLCHICINE [Concomitant]
  13. MULTIGEN [Concomitant]

REACTIONS (1)
  - Headache [Recovered/Resolved]
